FAERS Safety Report 9242616 (Version 2)
Quarter: 2013Q3

REPORT INFORMATION
  Report Type: Spontaneous
  Country: US (occurrence: US)
  Receive Date: 20130419
  Receipt Date: 20130808
  Transmission Date: 20140515
  Serious: Yes (Hospitalization, Disabling)
  Sender: FDA-Public Use
  Company Number: US-GLAXOSMITHKLINE-A1020556A

PATIENT
  Age: 47 Year
  Sex: Female

DRUGS (7)
  1. ADVAIR [Suspect]
     Indication: ASTHMA
     Route: 055
  2. LOSARTAN [Concomitant]
  3. METFORMIN [Concomitant]
  4. WELLBUTRIN [Concomitant]
     Route: 048
  5. GABAPENTIN [Concomitant]
  6. PROZAC [Concomitant]
  7. FLONASE [Concomitant]
     Route: 045

REACTIONS (6)
  - Arthralgia [Recovering/Resolving]
  - Arthritis [Unknown]
  - Osteoarthritis [Unknown]
  - Developmental hip dysplasia [Unknown]
  - Hip surgery [Unknown]
  - Swelling [Unknown]
